FAERS Safety Report 7455278-7 (Version None)
Quarter: 2011Q2

REPORT INFORMATION
  Report Type: 
  Country: None (occurrence: None)
  Receive Date: 20110503
  Receipt Date: 20110421
  Transmission Date: 20111010
  Serious: Yes (Hospitalization)
  Sender: FDA-Public Use
  Company Number: US-SOLVAY-00211003429

PATIENT
  Age: 21614 Day
  Sex: Male
  Weight: 136.36 kg

DRUGS (19)
  1. ANDROGEL [Suspect]
     Indication: BLOOD TESTOSTERONE DECREASED
     Dosage: DAILY DOSE:  UNKNOWN; AS USED: 5 GRAM
     Route: 062
     Dates: start: 20101101, end: 20110103
  2. ANDROGEL [Suspect]
     Dosage: DAILY DOSE:  UNKNOWN; AS USED: 5 GRAM
     Route: 062
     Dates: start: 20110420
  3. PERCOCET [Concomitant]
     Indication: PAIN
     Dosage: DAILY DOSE:  UNKNOWN; FREQUENCY: AS NEEDED; 10/325
     Route: 065
  4. XANAX [Concomitant]
     Indication: ANXIETY
     Dosage: DAILY DOSE:  UNKNOWN; FREQUENCY: AS NEEDED
     Route: 065
  5. FEXOFENODINE [Concomitant]
     Indication: HYPERSENSITIVITY
     Dosage: DAILY DOSE:  UNKNOWN; AS USED: 180 MG; FREQUENCY: AS NEEDED
     Route: 065
  6. SOMA [Concomitant]
     Indication: MUSCLE RELAXANT THERAPY
     Dosage: DAILY DOSE:  UNKNOWN; FREQUENCY: AS NEEDED
     Route: 065
  7. HUMALOG [Concomitant]
     Indication: DIABETES MELLITUS
     Dosage: DAILY DOSE:  UNKNOWN
     Route: 065
  8. LOVASTATIN [Concomitant]
     Indication: BLOOD CHOLESTEROL INCREASED
     Dosage: DAILY DOSE:  UNKNOWN
     Route: 065
  9. POTASSIUM [Concomitant]
     Indication: SUPPLEMENTATION THERAPY
     Dosage: DAILY DOSE:  UNKNOWN; AS USED: 40
     Route: 065
  10. PAXIL [Concomitant]
     Indication: ANXIETY
     Dosage: DAILY DOSE:  UNKNOWN; AS USED: 40
     Route: 065
  11. FUROSEMIDE [Concomitant]
     Indication: HYPERTENSION
     Dosage: DAILY DOSE:  UNKNOWN; AS USED: 40 MG
     Route: 065
  12. HUMIRA [Concomitant]
     Indication: RHEUMATOID ARTHRITIS
     Dosage: DAILY DOSE:  UNKNOWN; AS USED: 40 MG
     Route: 065
  13. SPIRONOLACTONE/HYDROCHLOROTHIAZIDE [Concomitant]
     Indication: HYPERTENSION
     Dosage: DAILY DOSE:  UNKNOWN; 25/25
     Route: 065
  14. RANITIDINE [Concomitant]
     Indication: GASTROOESOPHAGEAL REFLUX DISEASE
     Dosage: DAILY DOSE:  UNKNOWN
     Route: 065
  15. CALCIUM/VITAMIN D [Concomitant]
     Indication: SUPPLEMENTATION THERAPY
     Dosage: DAILY DOSE:  UNKNOWN
     Route: 065
  16. SYNTHROID [Concomitant]
     Indication: HYPOTHYROIDISM
     Dosage: DAILY DOSE:  UNKNOWN; AS USED: 137 MICROGRAM
     Route: 065
  17. CLONIDINE [Concomitant]
     Indication: HYPERTENSION
     Dosage: DAILY DOSE:  UNKNOWN
     Route: 065
  18. VITAMIN B-12 [Concomitant]
     Indication: VITAMIN B12 DEFICIENCY
     Dosage: DAILY DOSE:  UNKNOWN
     Route: 065
  19. HUMULIN N [Concomitant]
     Indication: DIABETES MELLITUS
     Dosage: DAILY DOSE:  UNKNOWN
     Route: 065

REACTIONS (2)
  - BLOOD PRESSURE INCREASED [None]
  - LOWER LIMB FRACTURE [None]
